FAERS Safety Report 4519743-4 (Version None)
Quarter: 2004Q4

REPORT INFORMATION
  Report Type: 
  Country: None (occurrence: None)
  Receive Date: 20041203
  Receipt Date: 20041203
  Transmission Date: 20050328
  Serious: Yes (Hospitalization)
  Sender: FDA-Public Use
  Company Number: None

PATIENT
  Age: 60 Year
  Sex: Male
  Weight: 106.1417 kg

DRUGS (9)
  1. IRINOTECAN HCL [Suspect]
     Indication: NON-SMALL CELL LUNG CANCER
     Dosage: 110 MG IV Q D1,D8
     Route: 042
     Dates: start: 20041027
  2. IRINOTECAN HCL [Suspect]
     Indication: NON-SMALL CELL LUNG CANCER
     Dosage: 110 MG IV Q D1,D8
     Route: 042
     Dates: start: 20041112
  3. IRINOTECAN HCL [Suspect]
     Indication: NON-SMALL CELL LUNG CANCER
     Dosage: 110 MG IV Q D1,D8
     Route: 042
     Dates: start: 20041119
  4. CARBOPLATIN [Suspect]
     Indication: NON-SMALL CELL LUNG CANCER
     Dosage: 786 MG IV 21 DAYS
     Route: 042
     Dates: start: 20041027
  5. CARBOPLATIN [Suspect]
     Indication: NON-SMALL CELL LUNG CANCER
     Dosage: 786 MG IV 21 DAYS
     Route: 042
     Dates: start: 20041112
  6. ALBUTEROL [Concomitant]
  7. IPRUBOPRIM BROMIDE [Concomitant]
  8. COMBIVENT [Concomitant]
  9. PERCOCET [Concomitant]

REACTIONS (4)
  - ARTHRALGIA [None]
  - BACK PAIN [None]
  - DISEASE PROGRESSION [None]
  - PNEUMONIA [None]
